FAERS Safety Report 10016436 (Version 1)
Quarter: 2014Q1

REPORT INFORMATION
  Report Type: Spontaneous
  Country: US (occurrence: US)
  Receive Date: 20140317
  Receipt Date: 20140317
  Transmission Date: 20141002
  Serious: Yes (Other)
  Sender: FDA-Public Use
  Company Number: CHPA2014US003879

PATIENT
  Age: 59 Year
  Sex: Female

DRUGS (3)
  1. NICOTINE [Suspect]
     Indication: SMOKING CESSATION THERAPY
     Dosage: 1 DF, QD
     Route: 062
     Dates: start: 201402
  2. NICOTINE [Suspect]
     Indication: INCORRECT DOSE ADMINISTERED
  3. NICOTINE [Suspect]
     Indication: OFF LABEL USE

REACTIONS (5)
  - Nicotine dependence [Not Recovered/Not Resolved]
  - Formication [Recovered/Resolved]
  - Abnormal dreams [Not Recovered/Not Resolved]
  - Headache [Not Recovered/Not Resolved]
  - Wrong technique in drug usage process [Unknown]
